FAERS Safety Report 10222122 (Version 2)
Quarter: 2014Q2

REPORT INFORMATION
  Report Type: Report from Study
  Country: US (occurrence: US)
  Receive Date: 20140606
  Receipt Date: 20140606
  Transmission Date: 20141212
  Serious: No
  Sender: FDA-Public Use
  Company Number: US-BIOMARINAP-US-2014-103108

PATIENT
  Age: 9 Year
  Sex: Male

DRUGS (6)
  1. NAGLAZYME [Suspect]
     Indication: MUCOPOLYSACCHARIDOSIS VI
     Dosage: 1 MG/KG, QW
     Dates: start: 20061220
  2. DIAZEPAM [Concomitant]
     Indication: PAIN
     Dosage: UNK
     Dates: start: 20091231
  3. LORATAB [Concomitant]
     Indication: PAIN
     Dosage: UNK
     Dates: start: 20100107
  4. IBUPROFEN [Concomitant]
     Indication: PAIN
     Dosage: 200 MG, PRN
     Route: 048
     Dates: start: 20120906
  5. ACETAMINOPHEN [Concomitant]
     Indication: PREMEDICATION
     Dosage: 240 MG, QW
     Route: 048
     Dates: start: 20061220
  6. LORATADINE [Concomitant]
     Indication: PREMEDICATION
     Dosage: 10 MG, QW
     Route: 048
     Dates: start: 20061220

REACTIONS (1)
  - Otitis media [Recovered/Resolved]
